FAERS Safety Report 10191847 (Version 1)
Quarter: 2014Q2

REPORT INFORMATION
  Report Type: Spontaneous
  Country: JP (occurrence: JP)
  Receive Date: 20140523
  Receipt Date: 20140523
  Transmission Date: 20141212
  Serious: Yes (Other)
  Sender: FDA-Public Use
  Company Number: JP-SA-2014SA066513

PATIENT
  Age: 64 Year
  Sex: Male

DRUGS (4)
  1. ELPLAT [Suspect]
     Indication: COLON CANCER
     Dosage: SOLUTION; INJECTION. 11 CYCLES
     Route: 041
     Dates: start: 20130311, end: 20130806
  2. FLUOROURACIL [Suspect]
     Indication: COLON CANCER
     Route: 040
     Dates: start: 20130311, end: 20130806
  3. FLUOROURACIL [Suspect]
     Indication: COLON CANCER
     Dosage: ONCE IN 2 DAYS; D1-2 AS CONTINUOUS INFUSION. 11 CYCLES
     Route: 041
     Dates: start: 20130311, end: 20130806
  4. LEVOFOLINATE [Concomitant]
     Route: 042
     Dates: start: 20130311, end: 20130806

REACTIONS (1)
  - Hyperammonaemia [Recovered/Resolved]
